FAERS Safety Report 6674385-X (Version None)
Quarter: 2010Q2

REPORT INFORMATION
  Report Type: 
  Country: None (occurrence: None)
  Receive Date: 20100409
  Receipt Date: 20100329
  Transmission Date: 20101027
  Serious: Yes (Other)
  Sender: FDA-Public Use
  Company Number: US-PFIZER INC-2010005292

PATIENT
  Sex: Male
  Weight: 110.66 kg

DRUGS (18)
  1. SUTENT [Suspect]
     Indication: METASTATIC RENAL CELL CARCINOMA
     Dosage: 50 MG, 1X/DAY, FOR 28 DAYS EVERY 42 DAYS
     Route: 048
     Dates: start: 20091222, end: 20100118
  2. OXYCODONE [Concomitant]
     Dosage: 5 MG, AS NEEDED
     Route: 048
     Dates: start: 20090715
  3. ZOLPIDEM [Concomitant]
     Dosage: 10 MG, AS NEEDED
     Route: 048
     Dates: start: 20090715
  4. LEVOTHYROXINE [Concomitant]
     Dosage: 50 UG, 1X/DAY
     Route: 048
     Dates: start: 20090715
  5. RAMIPRIL [Concomitant]
     Dosage: 10 MG, 2X/DAY
     Route: 048
     Dates: start: 20090715, end: 20100304
  6. HYDROCHLOROTHIAZIDE [Concomitant]
     Dosage: 25 MG, 1X/DAY
     Route: 048
     Dates: start: 20090715, end: 20100304
  7. ACETYLSALICYLIC ACID [Concomitant]
     Dosage: 81 MG, 1X/DAY
     Dates: start: 20090715, end: 20100304
  8. ATENOLOL [Concomitant]
     Dosage: 50 MG, 1X/DAY
     Route: 048
     Dates: start: 20090715
  9. ROSUVASTATIN CALCIUM [Concomitant]
     Dosage: 10 MG, 1X/DAY
     Route: 048
     Dates: start: 20090715
  10. EZETIMIBE [Concomitant]
     Dosage: 10 MG, 1X/DAY
     Route: 048
     Dates: start: 20090715
  11. AMIODARONE [Concomitant]
     Dosage: 200 MG, 1X/DAY
     Route: 048
     Dates: start: 20090715
  12. WARFARIN SODIUM [Concomitant]
     Dosage: UNK
     Dates: start: 20090715
  13. FISH OIL [Concomitant]
     Dosage: 500 MG, 1X/DAY
     Route: 048
     Dates: start: 20090715
  14. VITAMIN D [Concomitant]
     Dosage: 1000 IU, 1X/DAY
     Dates: start: 20090715
  15. COENZYME Q10 [Concomitant]
     Dosage: 75 MG, 1X/DAY
     Route: 048
     Dates: start: 20090715
  16. GLUCOSAMINE HYDROCHLORIDE/CHONDROITIN SULFATE [Concomitant]
     Dosage: DAILY
     Route: 048
     Dates: start: 20090715
  17. FLAXSEED OIL [Concomitant]
     Dosage: DAILY
     Route: 048
     Dates: start: 20090715
  18. GARLIC [Concomitant]
     Dosage: DAILY
     Route: 048
     Dates: start: 20091228

REACTIONS (10)
  - ANAEMIA [None]
  - BLOOD CREATININE INCREASED [None]
  - BLOOD PRESSURE INCREASED [None]
  - HAEMATURIA [None]
  - INTERNATIONAL NORMALISED RATIO INCREASED [None]
  - LEUKOPENIA [None]
  - MULTIPLE MYELOMA [None]
  - NEOPLASM MALIGNANT [None]
  - RENAL FAILURE ACUTE [None]
  - THROMBOCYTOPENIA [None]
